FAERS Safety Report 19814551 (Version 1)
Quarter: 2021Q3

REPORT INFORMATION
  Report Type: Spontaneous
  Country: US (occurrence: US)
  Receive Date: 20210910
  Receipt Date: 20210910
  Transmission Date: 20211014
  Serious: No
  Sender: FDA-Public Use
  Company Number: None

PATIENT
  Age: 60 Year
  Sex: Male
  Weight: 98 kg

DRUGS (1)
  1. BARICITINIB (BARICITINIB 2MG TAB) [Suspect]
     Active Substance: BARICITINIB
     Indication: COVID-19
     Route: 048
     Dates: start: 20210823, end: 20210831

REACTIONS (2)
  - Haemorrhage intracranial [None]
  - Cerebrovascular accident [None]

NARRATIVE: CASE EVENT DATE: 20210827
